FAERS Safety Report 10833312 (Version 1)
Quarter: 2015Q1

REPORT INFORMATION
  Report Type: Spontaneous
  Country: US (occurrence: US)
  Receive Date: 20150219
  Receipt Date: 20150219
  Transmission Date: 20150721
  Serious: No
  Sender: FDA-Public Use
  Company Number: US-RECKITT BENCKISER PHARMACEUTICAL, INC-RB-64983-2014

PATIENT

DRUGS (2)
  1. SUBOXONE [Suspect]
     Active Substance: BUPRENORPHINE HYDROCHLORIDE\NALOXONE HYDROCHLORIDE
     Indication: DRUG DEPENDENCE
     Dosage: SUBOXONE FILM; TOOK ONCE, DOSING DETAILS UNKNOWN
     Route: 065
     Dates: start: 201403, end: 201403
  2. SUBOXONE [Suspect]
     Active Substance: BUPRENORPHINE HYDROCHLORIDE\NALOXONE HYDROCHLORIDE
     Indication: DRUG DEPENDENCE
     Dosage: MEDICAL TAPER, FURTHER DOSING DETAILS UNKNOWN
     Route: 060
     Dates: end: 2009

REACTIONS (6)
  - Irritability [Recovered/Resolved]
  - Asthenia [Recovered/Resolved]
  - Activities of daily living impaired [Recovered/Resolved]
  - Substance abuse [Recovered/Resolved]
  - Food craving [Not Recovered/Not Resolved]
  - Drug dependence [Recovered/Resolved]

NARRATIVE: CASE EVENT DATE: 2009
